FAERS Safety Report 10248281 (Version 2)
Quarter: 2014Q2

REPORT INFORMATION
  Report Type: Spontaneous
  Country: FR (occurrence: FR)
  Receive Date: 20140620
  Receipt Date: 20140620
  Transmission Date: 20141212
  Serious: Yes (Hospitalization)
  Sender: FDA-Public Use
  Company Number: FR-ROCHE-1417076

PATIENT
  Age: 80 Year
  Sex: Female

DRUGS (1)
  1. NAPROXEN [Suspect]
     Indication: ARTHRALGIA
     Route: 065

REACTIONS (1)
  - Pulmonary eosinophilia [Recovering/Resolving]
